FAERS Safety Report 9106506 (Version 1)
Quarter: 2013Q1

REPORT INFORMATION
  Report Type: Spontaneous
  Country: BR (occurrence: BR)
  Receive Date: 20130221
  Receipt Date: 20130221
  Transmission Date: 20140127
  Serious: Yes (Disabling, Other)
  Sender: FDA-Public Use
  Company Number: PHHY2013BR016261

PATIENT
  Sex: Male
  Weight: 55 kg

DRUGS (6)
  1. TEGRETOL [Suspect]
     Indication: AGGRESSION
     Dosage: 2 DF, DAILY
     Route: 048
  2. RISPERIDONE [Concomitant]
     Indication: AGITATION
     Dosage: 2 DF, DAILY
     Route: 048
  3. LORAZEPAM [Concomitant]
     Indication: AGITATION
     Dosage: 2 DF, DAILY
     Route: 048
  4. NEOZINE//LEVOMEPROMAZINE HYDROCHLORIDE [Concomitant]
     Dosage: 3 DF, DAILY
     Route: 048
  5. LASIX [Concomitant]
     Indication: SWELLING
     Dosage: 1 DF, DAILY
     Route: 048
  6. GEROVITAL [Concomitant]
     Indication: ASTHENIA
     Dosage: 1 DF, DAILY
     Route: 048

REACTIONS (4)
  - Abasia [Not Recovered/Not Resolved]
  - Speech disorder [Not Recovered/Not Resolved]
  - Urinary tract infection [Not Recovered/Not Resolved]
  - Swelling [Not Recovered/Not Resolved]
